FAERS Safety Report 4614984-X (Version None)
Quarter: 2005Q1

REPORT INFORMATION
  Report Type: 
  Country: None (occurrence: None)
  Receive Date: 20050318
  Receipt Date: 20050318
  Transmission Date: 20050727
  Serious: Yes (Life-Threatening, Hospitalization, Disabling, Other)
  Sender: FDA-Public Use
  Company Number: None

PATIENT
  Age: 50 Year
  Sex: Male
  Weight: 81.6475 kg

DRUGS (2)
  1. ATIVAN [Suspect]
     Indication: INSOMNIA
     Dosage: 5 MG PER DAY-REDUCED
     Dates: start: 19870101
  2. KLONOPIN [Suspect]
     Dosage: TO 1 MG KLONOPIN PER DAY

REACTIONS (9)
  - AMNESIA [None]
  - COGNITIVE DISORDER [None]
  - DRUG DEPENDENCE [None]
  - EDUCATIONAL PROBLEM [None]
  - HEADACHE [None]
  - LOSS OF EMPLOYMENT [None]
  - MALAISE [None]
  - MUSCLE SPASMS [None]
  - PAIN [None]
